FAERS Safety Report 6640724-9 (Version None)
Quarter: 2010Q1

REPORT INFORMATION
  Report Type: 
  Country: None (occurrence: None)
  Receive Date: 20100318
  Receipt Date: 20100308
  Transmission Date: 20100710
  Serious: Yes (Hospitalization)
  Sender: FDA-Public Use
  Company Number: GB-ELI_LILLY_AND_COMPANY-GB201003002651

PATIENT
  Sex: Female

DRUGS (2)
  1. HUMULIN 70/30 [Suspect]
     Dosage: 36 U, EACH MORNING
  2. HUMULIN 70/30 [Suspect]
     Dosage: 24 U, EACH EVENING

REACTIONS (5)
  - ANKLE FRACTURE [None]
  - BLOOD GLUCOSE INCREASED [None]
  - FALL [None]
  - JOINT DISLOCATION [None]
  - WRIST FRACTURE [None]
